FAERS Safety Report 15058852 (Version 1)
Quarter: 2018Q2

REPORT INFORMATION
  Report Type: Spontaneous
  Country: CN (occurrence: CN)
  Receive Date: 20180625
  Receipt Date: 20180625
  Transmission Date: 20180711
  Serious: Yes (Hospitalization, Other)
  Sender: FDA-Public Use
  Company Number: CN-GLAXOSMITHKLINE-CN2018GSK110456

PATIENT
  Sex: Female

DRUGS (2)
  1. SERETIDE [Suspect]
     Active Substance: FLUTICASONE PROPIONATE\SALMETEROL XINAFOATE
     Indication: ASTHMA
     Dosage: 1 PUFF(S), BID
     Route: 055
     Dates: start: 2000
  2. ATROVENT [Concomitant]
     Active Substance: IPRATROPIUM BROMIDE
     Indication: PRODUCT USED FOR UNKNOWN INDICATION
     Dosage: UNK UNK, BID

REACTIONS (22)
  - Product use issue [Unknown]
  - Gastrointestinal disorder [Unknown]
  - Drug dose omission [Unknown]
  - Cold sweat [Unknown]
  - Throat irritation [Recovering/Resolving]
  - Purulence [Unknown]
  - Chronic obstructive pulmonary disease [Unknown]
  - Candida infection [Recovering/Resolving]
  - Wrong technique in product usage process [Unknown]
  - Eosinophils urine [Unknown]
  - Haematochezia [Unknown]
  - Anorectal swelling [Unknown]
  - Flushing [Unknown]
  - Asthma [Recovering/Resolving]
  - Nephropathy toxic [Unknown]
  - Anorectal operation [Unknown]
  - Feeling cold [Unknown]
  - Pharyngeal oedema [Recovering/Resolving]
  - Ear pruritus [Recovering/Resolving]
  - Respiratory arrest [Unknown]
  - Blood pressure increased [Unknown]
  - Treatment noncompliance [Unknown]
